FAERS Safety Report 4430455-8 (Version None)
Quarter: 2004Q3

REPORT INFORMATION
  Report Type: 
  Country: None (occurrence: None)
  Receive Date: 20040721
  Receipt Date: 20030728
  Transmission Date: 20050211
  Serious: Yes (Hospitalization)
  Sender: FDA-Public Use
  Company Number: WAES0301USA03198

PATIENT
  Age: 55 Year
  Sex: Male
  Weight: 64.4108 kg

DRUGS (3)
  1. VIOXX [Suspect]
     Indication: ARTHRALGIA
     Dosage: 25 MG/DAILY/PO
     Route: 048
     Dates: start: 20011015, end: 20011022
  2. ACCUPRIL [Concomitant]
  3. ALLOPURINOL [Concomitant]

REACTIONS (1)
  - GASTRIC HAEMORRHAGE [None]
